FAERS Safety Report 24984060 (Version 1)
Quarter: 2025Q1

REPORT INFORMATION
  Report Type: Spontaneous
  Country: CN (occurrence: CN)
  Receive Date: 20250219
  Receipt Date: 20250219
  Transmission Date: 20250408
  Serious: Yes (Other)
  Sender: ROCHE
  Company Number: CN-BoehringerIngelheim-2025-BI-007531

PATIENT
  Age: 57 Year
  Sex: Male
  Weight: 65.0 kg

DRUGS (2)
  1. ALTEPLASE [Suspect]
     Active Substance: ALTEPLASE
     Indication: Cerebral infarction
     Route: 040
     Dates: start: 20250201, end: 20250201
  2. ALTEPLASE [Suspect]
     Active Substance: ALTEPLASE
     Route: 040
     Dates: start: 20250201, end: 20250201

REACTIONS (2)
  - Coma [Unknown]
  - Mouth haemorrhage [Recovering/Resolving]

NARRATIVE: CASE EVENT DATE: 20250201
